FAERS Safety Report 7206251-5 (Version None)
Quarter: 2011Q1

REPORT INFORMATION
  Report Type: 
  Country: None (occurrence: None)
  Receive Date: 20110103
  Receipt Date: 20101220
  Transmission Date: 20110831
  Serious: Yes (Other)
  Sender: FDA-Public Use
  Company Number: PHHY2010JP87963

PATIENT
  Sex: Male
  Weight: 50 kg

DRUGS (7)
  1. LOXONIN [Concomitant]
     Dosage: 120 MG, UNK
     Route: 048
     Dates: start: 20090409, end: 20090505
  2. MAGMITT [Concomitant]
     Dosage: 990 MG, UNK
     Route: 048
     Dates: start: 20090430, end: 20090918
  3. OXYCONTIN [Concomitant]
     Dosage: 20 MG, UNK
     Route: 048
     Dates: start: 20090515, end: 20090918
  4. RED BLOOD CELLS, CONCENTRATED [Concomitant]
     Dosage: 4 U, EVERY WEEK
     Dates: end: 20090916
  5. EXJADE [Suspect]
     Indication: MYELOFIBROSIS
     Dosage: 1000 MG, DAILY
     Route: 048
     Dates: start: 20090409, end: 20090422
  6. PARIET [Concomitant]
     Dosage: 10 MG, UNK
     Route: 048
     Dates: start: 20090409, end: 20090918
  7. DESFERAL [Concomitant]
     Indication: MYELODYSPLASTIC SYNDROME
     Dosage: 500 MG, UNK
     Route: 030
     Dates: start: 20080515, end: 20080807

REACTIONS (4)
  - NEOPLASM MALIGNANT [None]
  - MYELOFIBROSIS [None]
  - WHITE BLOOD CELL COUNT INCREASED [None]
  - HEPATIC FUNCTION ABNORMAL [None]
